FAERS Safety Report 6673583-9 (Version None)
Quarter: 2010Q2

REPORT INFORMATION
  Report Type: 
  Country: None (occurrence: None)
  Receive Date: 20100408
  Receipt Date: 20100326
  Transmission Date: 20101027
  Serious: Yes (Other)
  Sender: FDA-Public Use
  Company Number: US-PFIZER INC-2010026632

PATIENT
  Sex: Female
  Weight: 70.295 kg

DRUGS (5)
  1. NEURONTIN [Suspect]
     Dosage: UNK
     Route: 048
     Dates: start: 20060101
  2. NEURONTIN [Suspect]
     Dosage: 100 MG, 2X/DAY
  3. GABAPENTIN [Suspect]
     Dosage: UNK
     Route: 048
  4. ASPIRIN [Concomitant]
  5. CODEINE [Concomitant]

REACTIONS (17)
  - BACK PAIN [None]
  - DRUG INTOLERANCE [None]
  - EXPIRED DRUG ADMINISTERED [None]
  - FOOT DEFORMITY [None]
  - HEADACHE [None]
  - HYPERSENSITIVITY [None]
  - NAUSEA [None]
  - OSTEOARTHRITIS [None]
  - PAIN [None]
  - PAIN IN EXTREMITY [None]
  - PRURITUS [None]
  - RASH [None]
  - SOMNOLENCE [None]
  - SPINAL FRACTURE [None]
  - SWELLING [None]
  - TREMOR [None]
  - WEIGHT DECREASED [None]
